FAERS Safety Report 6585556-5 (Version None)
Quarter: 2010Q1

REPORT INFORMATION
  Report Type: 
  Country: None (occurrence: None)
  Receive Date: 20100217
  Receipt Date: 20100209
  Transmission Date: 20100710
  Serious: Yes (Other)
  Sender: FDA-Public Use
  Company Number: BR-ROCHE-684279

PATIENT
  Age: 36 Year
  Sex: Female
  Weight: 63 kg

DRUGS (8)
  1. RIVOTRIL [Suspect]
     Indication: PANIC DISORDER
     Route: 048
     Dates: start: 20050101
  2. RIVOTRIL [Suspect]
     Dosage: FREQUENCY: 1 TABLET AT NIGHT
     Route: 048
  3. RIVOTRIL [Suspect]
     Dosage: APPROXIMATELY 6 DROPS IN THE MORNING AND AT NIGHT (MEDICATION ERROR)
     Route: 065
  4. SERTRALINE HCL [Suspect]
     Indication: PANIC DISORDER
     Route: 065
  5. PONDERA [Concomitant]
     Indication: PANIC DISORDER
     Dosage: IN MORNING
     Dates: start: 20050101
  6. PONDERA [Concomitant]
  7. PONDERA [Concomitant]
  8. APRAZ [Concomitant]
     Indication: PANIC DISORDER

REACTIONS (8)
  - BACTERIURIA [None]
  - BLOOD CHOLESTEROL INCREASED [None]
  - CARDIAC DISORDER [None]
  - DRUG ADMINISTRATION ERROR [None]
  - LEUKOCYTURIA [None]
  - PANIC ATTACK [None]
  - SCOLIOSIS [None]
  - UTERINE POLYP [None]
